FAERS Safety Report 25328242 (Version 1)
Quarter: 2025Q2

REPORT INFORMATION
  Report Type: Spontaneous
  Country: DK (occurrence: DK)
  Receive Date: 20250518
  Receipt Date: 20250518
  Transmission Date: 20250716
  Serious: Yes (Hospitalization, Other)
  Sender: JOHNSON AND JOHNSON
  Company Number: None

PATIENT
  Age: 66 Year
  Sex: Male
  Weight: 90 kg

DRUGS (4)
  1. XARELTO [Suspect]
     Active Substance: RIVAROXABAN
     Indication: Product used for unknown indication
     Dosage: 20 MG, QD
     Route: 048
     Dates: start: 20240712, end: 20241115
  2. CIPRALEX [Concomitant]
     Active Substance: ESCITALOPRAM OXALATE
     Indication: Depression
     Dosage: 10 MG, QD
     Dates: start: 2015
  3. Mirtazapine orifarm [Concomitant]
     Indication: Depression
     Dosage: 30 MG, QD
     Dates: start: 2018
  4. EXELON [Concomitant]
     Active Substance: RIVASTIGMINE TARTRATE
     Indication: Dementia
     Dosage: 1 DF, QD
     Dates: start: 2018

REACTIONS (3)
  - Subdural haematoma [Recovered/Resolved]
  - Language disorder [Unknown]
  - Seizure [Unknown]

NARRATIVE: CASE EVENT DATE: 20241113
